FAERS Safety Report 25045150 (Version 3)
Quarter: 2025Q3

REPORT INFORMATION
  Report Type: Report from Study
  Country: US (occurrence: US)
  Receive Date: 20250306
  Receipt Date: 20250703
  Transmission Date: 20251020
  Serious: Yes (Other)
  Sender: ABBVIE
  Company Number: US-ABBVIE-6114171

PATIENT
  Sex: Female

DRUGS (1)
  1. RINVOQ [Suspect]
     Active Substance: UPADACITINIB
     Indication: Ankylosing spondylitis
     Route: 048
     Dates: start: 20221218

REACTIONS (6)
  - Therapeutic nerve ablation [Recovering/Resolving]
  - Spinal operation [Recovering/Resolving]
  - Road traffic accident [Recovering/Resolving]
  - Pain [Not Recovered/Not Resolved]
  - Product storage error [Not Recovered/Not Resolved]
  - Procedural pain [Not Recovered/Not Resolved]
